FAERS Safety Report 9788606 (Version 2)
Quarter: 2013Q4

REPORT INFORMATION
  Report Type: Spontaneous
  Country: US (occurrence: US)
  Receive Date: 20131230
  Receipt Date: 20131230
  Transmission Date: 20140711
  Serious: No
  Sender: FDA-Public Use
  Company Number: US-ASTRAZENECA-2011SE60954

PATIENT
  Age: 64 Year
  Sex: Female
  Weight: 70.3 kg

DRUGS (16)
  1. NEXIUM [Suspect]
     Indication: GASTROOESOPHAGEAL REFLUX DISEASE
     Route: 048
     Dates: start: 2003
  2. NEXIUM [Suspect]
     Indication: GASTROOESOPHAGEAL REFLUX DISEASE
     Route: 048
     Dates: start: 2006, end: 2008
  3. NEXIUM [Suspect]
     Indication: GASTROOESOPHAGEAL REFLUX DISEASE
     Route: 048
     Dates: start: 2011
  4. LISINOPRIL [Suspect]
     Indication: BLOOD PRESSURE ABNORMAL
     Route: 048
     Dates: start: 2008
  5. BRILINTA [Suspect]
     Indication: ANTICOAGULANT THERAPY
     Route: 048
     Dates: start: 2008
  6. RANITIDINE [Concomitant]
     Indication: GASTRIC DISORDER
  7. BUTAPPACAL [Concomitant]
     Indication: MIGRAINE
  8. METFORMIN [Concomitant]
     Indication: DIABETES MELLITUS
  9. CARVEDILOL [Concomitant]
     Indication: CARDIAC DISORDER
  10. CLONIDINE [Concomitant]
     Indication: BLOOD PRESSURE ABNORMAL
  11. TICOR [Concomitant]
     Indication: BLOOD CHOLESTEROL ABNORMAL
  12. LEVOTHYROXINE [Concomitant]
     Indication: THYROID DISORDER
  13. PRAVASTATIN [Concomitant]
     Indication: BLOOD CHOLESTEROL ABNORMAL
  14. RANEXA [Concomitant]
     Indication: CARDIAC DISORDER
  15. ASPIRIN [Concomitant]
     Indication: CARDIAC DISORDER
  16. VESICARE [Concomitant]
     Indication: BLADDER DISORDER

REACTIONS (8)
  - Blood cholesterol increased [Unknown]
  - Hypertension [Unknown]
  - Diabetes mellitus [Unknown]
  - Malaise [Unknown]
  - Eructation [Unknown]
  - Vomiting [Unknown]
  - Drug dose omission [Unknown]
  - Drug ineffective [Unknown]
